FAERS Safety Report 7414402-2 (Version None)
Quarter: 2011Q2

REPORT INFORMATION
  Report Type: 
  Country: None (occurrence: None)
  Receive Date: 20110411
  Receipt Date: 20110411
  Transmission Date: 20111010
  Serious: Yes (Death, Hospitalization)
  Sender: FDA-Public Use
  Company Number: None

PATIENT
  Sex: Male
  Weight: 18.9 kg

DRUGS (8)
  1. ETOPOSIDE [Suspect]
     Dosage: 320 MG
  2. CYCLOPHOSPHAMIDE [Suspect]
     Dosage: 2378 MG
  3. MESNA [Suspect]
     Dosage: 570 MG
  4. DOXORUBICIN HCL [Suspect]
     Dosage: 36.5 MG
  5. G-CSF (FILGRASTIM, AMGEN) [Suspect]
     Dosage: 2700 MG
  6. IRINOTECAN (CPT-11, CAMPTOSAR) [Suspect]
     Dosage: 112 MG
  7. CARBOPLATIN [Suspect]
     Dosage: 296 MG
  8. VINCRISTINE SULFATE [Suspect]
     Dosage: 3 MG

REACTIONS (25)
  - INTESTINAL FISTULA [None]
  - ABSCESS [None]
  - DISSEMINATED INTRAVASCULAR COAGULATION [None]
  - ASCITES [None]
  - ANURIA [None]
  - PYREXIA [None]
  - BACTERIAL SEPSIS [None]
  - TUMOUR HAEMORRHAGE [None]
  - RENAL IMPAIRMENT [None]
  - RETROGRADE PORTAL VEIN FLOW [None]
  - HYPERTENSION [None]
  - HYPERBILIRUBINAEMIA [None]
  - TUMOUR COMPRESSION [None]
  - MULTI-ORGAN FAILURE [None]
  - HAEMORRHAGE [None]
  - ASTHENIA [None]
  - NUTRITIONAL CONDITION ABNORMAL [None]
  - RESPIRATORY DISTRESS [None]
  - PERITONITIS [None]
  - HEPATIC FUNCTION ABNORMAL [None]
  - SMALL INTESTINAL OBSTRUCTION [None]
  - PLEURAL EFFUSION [None]
  - ATELECTASIS [None]
  - PANCYTOPENIA [None]
  - HAEMODYNAMIC INSTABILITY [None]
